FAERS Safety Report 16231790 (Version 1)
Quarter: 2019Q2

REPORT INFORMATION
  Report Type: Spontaneous
  Country: GB (occurrence: GB)
  Receive Date: 20190424
  Receipt Date: 20190424
  Transmission Date: 20190711
  Serious: Yes (Other)
  Sender: FDA-Public Use
  Company Number: GB-ACCORD-123670

PATIENT
  Age: 70 Year
  Sex: Female

DRUGS (2)
  1. PREDNISOLONE. [Concomitant]
     Active Substance: PREDNISOLONE
  2. RAMIPRIL. [Suspect]
     Active Substance: RAMIPRIL
     Indication: CARDIAC FAILURE

REACTIONS (6)
  - Pain [Recovered/Resolved]
  - Lethargy [Recovered/Resolved]
  - Product substitution issue [Unknown]
  - Influenza like illness [Recovered/Resolved]
  - Reaction to colouring [Unknown]
  - Malaise [Recovered/Resolved]
